FAERS Safety Report 6647315-4 (Version None)
Quarter: 2010Q1

REPORT INFORMATION
  Report Type: 
  Country: None (occurrence: None)
  Receive Date: 20100323
  Receipt Date: 20100311
  Transmission Date: 20100710
  Serious: Yes (Life-Threatening, Hospitalization)
  Sender: FDA-Public Use
  Company Number: B0633186A

PATIENT
  Sex: Male
  Weight: 57 kg

DRUGS (6)
  1. EPZICOM [Suspect]
     Indication: HIV INFECTION
     Route: 048
     Dates: start: 20081010
  2. LEXIVA [Suspect]
     Indication: HIV INFECTION
     Dosage: 1400MG PER DAY
     Route: 048
     Dates: start: 20081010
  3. LEXIVA [Suspect]
     Dosage: 2800MG PER DAY
     Route: 048
     Dates: start: 20091114
  4. NORVIR [Suspect]
     Indication: HIV INFECTION
     Dosage: 200MG PER DAY
     Route: 048
     Dates: start: 20081010, end: 20091113
  5. NORVIR [Concomitant]
     Route: 048
  6. METRONIDAZOLE [Concomitant]
     Route: 065
     Dates: start: 20081219, end: 20081228

REACTIONS (3)
  - INTRACARDIAC THROMBUS [None]
  - ISCHAEMIA [None]
  - MYOCARDIAL INFARCTION [None]
